FAERS Safety Report 8817093 (Version 1)
Quarter: 2012Q4

REPORT INFORMATION
  Report Type: Spontaneous
  Country: US (occurrence: None)
  Receive Date: 20121003
  Receipt Date: 20121003
  Transmission Date: 20130627
  Serious: Yes (Hospitalization)
  Sender: FDA-Public Use
  Company Number: None

PATIENT
  Age: 63 Year
  Sex: Female
  Weight: 83.92 kg

DRUGS (2)
  1. LIOTHYRONINE [Suspect]
     Indication: PANHYPOPITUITARISM
     Dates: start: 20090801, end: 20091201
  2. METOPROLOL TARTRATE [Suspect]
     Dates: start: 20091205, end: 20120323

REACTIONS (7)
  - Blood pressure increased [None]
  - Blood potassium decreased [None]
  - Myalgia [None]
  - Arthralgia [None]
  - Arrhythmia [None]
  - Vomiting [None]
  - Hypotension [None]
